FAERS Safety Report 4271785-2 (Version None)
Quarter: 2004Q1

REPORT INFORMATION
  Report Type: 
  Country: None (occurrence: None)
  Receive Date: 20040115
  Receipt Date: 20040112
  Transmission Date: 20041129
  Serious: Yes (Hospitalization)
  Sender: FDA-Public Use
  Company Number: US-GLAXOSMITHKLINE-A0492593A

PATIENT
  Age: 48 Year
  Sex: Male

DRUGS (8)
  1. SEREVENT [Suspect]
     Indication: ASTHMA
     Dosage: 1PUFF TWICE PER DAY
     Route: 055
     Dates: start: 20031001
  2. ADVAIR DISKUS 250/50 [Suspect]
     Indication: ASTHMA
     Dosage: 1PUFF TWICE PER DAY
     Route: 055
     Dates: start: 20030101, end: 20030101
  3. NORVASC [Concomitant]
  4. LISINOPRIL [Concomitant]
  5. CLONIDINE [Concomitant]
  6. ATROVENT [Concomitant]
  7. BECLOMETHASONE DIPROPIONATE [Concomitant]
  8. ALBUTEROL [Concomitant]

REACTIONS (5)
  - DEHYDRATION [None]
  - DRUG INEFFECTIVE [None]
  - DYSPNOEA [None]
  - GASTROINTESTINAL INFECTION [None]
  - NASOPHARYNGITIS [None]
